FAERS Safety Report 21022365 (Version 7)
Quarter: 2024Q1

REPORT INFORMATION
  Report Type: Report from Study
  Country: CO (occurrence: CO)
  Receive Date: 20220629
  Receipt Date: 20240103
  Transmission Date: 20240409
  Serious: Yes (Hospitalization, Other)
  Sender: FDA-Public Use
  Company Number: CO-NOVARTISPH-NVSC2022CO130213

PATIENT
  Age: 37 Year
  Sex: Female

DRUGS (8)
  1. KISQALI [Suspect]
     Active Substance: RIBOCICLIB
     Indication: Breast cancer metastatic
     Dosage: 600 MG, QD
     Route: 048
     Dates: start: 202112
  2. KISQALI [Suspect]
     Active Substance: RIBOCICLIB
     Dosage: UNK
     Route: 048
  3. KISQALI [Suspect]
     Active Substance: RIBOCICLIB
     Dosage: UNK, QD
     Route: 048
  4. KISQALI [Suspect]
     Active Substance: RIBOCICLIB
     Dosage: 600 MG, QD
     Route: 048
     Dates: start: 20211201
  5. KISQALI [Suspect]
     Active Substance: RIBOCICLIB
     Dosage: 400 MG, QD (2 TABLETS)
     Route: 048
  6. FULVESTRANT [Suspect]
     Active Substance: FULVESTRANT
     Indication: Breast cancer
     Dosage: UNK (EVERY 28 DAYS)
     Route: 065
  7. IBANDRONIC ACID [Concomitant]
     Active Substance: IBANDRONIC ACID
     Indication: Breast cancer
     Dosage: UNK
     Route: 065
  8. TAMOXIFEN [Concomitant]
     Active Substance: TAMOXIFEN
     Indication: Product used for unknown indication
     Dosage: 20 MG, QD
     Route: 065
     Dates: start: 201804

REACTIONS (31)
  - Pulmonary mass [Unknown]
  - Dyspnoea [Not Recovered/Not Resolved]
  - Cough [Not Recovered/Not Resolved]
  - Back pain [Recovering/Resolving]
  - Musculoskeletal chest pain [Recovering/Resolving]
  - Haemorrhage [Unknown]
  - Skin exfoliation [Unknown]
  - Skin discolouration [Unknown]
  - Burning sensation [Unknown]
  - Hypersensitivity [Unknown]
  - Discomfort [Unknown]
  - Pigmentation disorder [Unknown]
  - Rash [Unknown]
  - Pruritus [Unknown]
  - Memory impairment [Unknown]
  - Malaise [Unknown]
  - Skin irritation [Unknown]
  - Scratch [Unknown]
  - Skin disorder [Unknown]
  - Skin discomfort [Unknown]
  - Haemorrhoids [Recovered/Resolved]
  - Gingival bleeding [Unknown]
  - White blood cell count decreased [Unknown]
  - Aphonia [Unknown]
  - Haemoglobin decreased [Unknown]
  - Chest pain [Unknown]
  - Lacrimation increased [Unknown]
  - Diarrhoea [Unknown]
  - Dry skin [Unknown]
  - Vomiting [Unknown]
  - Nausea [Unknown]

NARRATIVE: CASE EVENT DATE: 20231110
